FAERS Safety Report 24738834 (Version 1)
Quarter: 2024Q4

REPORT INFORMATION
  Report Type: Spontaneous
  Country: US (occurrence: US)
  Receive Date: 20241216
  Receipt Date: 20241216
  Transmission Date: 20250114
  Serious: No
  Sender: ALVOGEN
  Company Number: US-ALVOGEN-2024093105

PATIENT

DRUGS (1)
  1. FENTANYL [Suspect]
     Active Substance: FENTANYL
     Indication: Pain
     Dosage: EXP DATE: UU-DEC-2026?75UG
     Route: 062
     Dates: start: 20240201

REACTIONS (2)
  - Device malfunction [Unknown]
  - Device adhesion issue [Unknown]
